FAERS Safety Report 5582628-9 (Version None)
Quarter: 2008Q1

REPORT INFORMATION
  Report Type: 
  Country: None (occurrence: None)
  Receive Date: 20080107
  Receipt Date: 20071228
  Transmission Date: 20080703
  Serious: Yes (Hospitalization)
  Sender: FDA-Public Use
  Company Number: PHBS2007BR21594

PATIENT
  Age: 25 Year
  Sex: Female

DRUGS (4)
  1. PARCEL (NCH) [Suspect]
     Indication: HEADACHE
     Dosage: UNK, TID
     Dates: start: 20071226
  2. TEGRETOL [Suspect]
     Indication: CONVULSION
     Dosage: 200 MG, TID
     Route: 048
     Dates: start: 20050101
  3. TEGRETOL [Suspect]
     Dosage: 200 MG, BID
  4. TEGRETOL [Suspect]
     Dosage: 200 MG, TID

REACTIONS (6)
  - ANTICONVULSANT DRUG LEVEL BELOW THERAPEUTIC [None]
  - CONVULSION [None]
  - DIZZINESS [None]
  - DRUG INTERACTION [None]
  - HEADACHE [None]
  - SYNCOPE [None]
